FAERS Safety Report 20941750 (Version 1)
Quarter: 2022Q2

REPORT INFORMATION
  Report Type: Report from Study
  Country: OM (occurrence: None)
  Receive Date: 20220610
  Receipt Date: 20220610
  Transmission Date: 20220721
  Serious: Yes (Death)
  Sender: FDA-Public Use
  Company Number: OM-Merck Healthcare KGaA-9328507

PATIENT
  Age: 17 Year
  Sex: Male

DRUGS (1)
  1. SAIZEN [Suspect]
     Active Substance: SOMATROPIN
     Indication: Growth hormone deficiency
     Route: 058
     Dates: start: 20201115

REACTIONS (1)
  - Death [Fatal]

NARRATIVE: CASE EVENT DATE: 20220606
